FAERS Safety Report 9192839 (Version 1)
Quarter: 2013Q1

REPORT INFORMATION
  Report Type: Report from Study
  Country: US (occurrence: US)
  Receive Date: 20130327
  Receipt Date: 20130327
  Transmission Date: 20140127
  Serious: No
  Sender: FDA-Public Use
  Company Number: US-VERTEX PHARMACEUTICALS INC.-2013-004083

PATIENT
  Sex: Female
  Weight: 75 kg

DRUGS (9)
  1. VX-950 (TELAPREVIR) [Suspect]
     Indication: HEPATITIS C
     Dosage: 750 MG, TID
     Route: 048
  2. PEGASYS [Suspect]
     Indication: HEPATITIS C
  3. RIBASPHERE [Suspect]
     Indication: HEPATITIS C
     Dosage: 200 MG, UNK
  4. SERTRALINE [Concomitant]
     Dosage: 25 MG, UNK
  5. SYNTHROID [Concomitant]
     Dosage: 25 ?G, UNK
  6. HYDROXYZINE HCL [Concomitant]
     Dosage: 10 MG, UNK
  7. ITCH RELIEF [Concomitant]
  8. METOPROLOL [Concomitant]
     Dosage: 25 MG, UNK
  9. IBUPROFEN [Concomitant]
     Dosage: 200 MG, UNK

REACTIONS (1)
  - Red blood cell count decreased [Unknown]
